FAERS Safety Report 8698706 (Version 3)
Quarter: 2012Q4

REPORT INFORMATION
  Report Type: 
  Country: US (occurrence: US)
  Receive Date: 20120802
  Receipt Date: 20120918
  Transmission Date: 20130627
  Serious: Yes (Hospitalization, Other)
  Sender: FDA-Public Use
  Company Number: PHEH2012US014976

PATIENT
  Age: 47 Year
  Sex: Female

DRUGS (4)
  1. TASIGNA [Suspect]
     Indication: CHRONIC MYELOID LEUKAEMIA
     Dosage: 300 mg, BID
     Route: 048
     Dates: start: 20120717
  2. PRILOSEC [Concomitant]
  3. ROLAIDS [Concomitant]
  4. LASIX [Concomitant]

REACTIONS (5)
  - Atrial fibrillation [Unknown]
  - Viral infection [Unknown]
  - Insomnia [Unknown]
  - Headache [Unknown]
  - Cough [Unknown]
